FAERS Safety Report 6464491-7 (Version None)
Quarter: 2009Q4

REPORT INFORMATION
  Report Type: 
  Country: None (occurrence: None)
  Receive Date: 20091118
  Receipt Date: 20090604
  Transmission Date: 20100525
  Serious: Yes (Hospitalization)
  Sender: FDA-Public Use
  Company Number: 2009BI003126

PATIENT
  Age: 40 Year
  Sex: Female

DRUGS (3)
  1. TYSABRI [Suspect]
     Indication: MULTIPLE SCLEROSIS
     Dosage: 300 MG;QM;IV
     Route: 042
     Dates: start: 20070814
  2. AVONEX [Concomitant]
  3. REBIF [Concomitant]

REACTIONS (9)
  - APPENDICITIS [None]
  - ASTHENIA [None]
  - HEADACHE [None]
  - INTERVERTEBRAL DISC PROTRUSION [None]
  - MENOPAUSAL SYMPTOMS [None]
  - NASOPHARYNGITIS [None]
  - NAUSEA [None]
  - NYSTAGMUS [None]
  - VISUAL IMPAIRMENT [None]
